FAERS Safety Report 10936857 (Version 2)
Quarter: 2015Q2

REPORT INFORMATION
  Report Type: Spontaneous
  Country: US (occurrence: US)
  Receive Date: 20150321
  Receipt Date: 20150525
  Transmission Date: 20150821
  Serious: Yes (Other)
  Sender: FDA-Public Use
  Company Number: US-JNJFOC-20140719676

PATIENT
  Age: 3 Year
  Sex: Male

DRUGS (9)
  1. PENTOBARBITAL [Suspect]
     Active Substance: PENTOBARBITAL
     Indication: EPILEPSY
     Dosage: 5 MG/KG/DOSE
     Route: 042
  2. TOPIRAMATE. [Suspect]
     Active Substance: TOPIRAMATE
     Indication: SEIZURE
     Route: 048
  3. LEVETIRACETAM. [Suspect]
     Active Substance: LEVETIRACETAM
     Indication: SEIZURE
     Route: 065
  4. LACOSAMIDE [Suspect]
     Active Substance: LACOSAMIDE
     Indication: SEIZURE
     Route: 065
  5. PENTOBARBITAL [Suspect]
     Active Substance: PENTOBARBITAL
     Indication: EPILEPSY
     Dosage: 10MG/KG/HR
     Route: 042
  6. VALPROIC ACID. [Suspect]
     Active Substance: VALPROIC ACID
     Indication: SEIZURE
     Route: 065
  7. PHENOBARBITAL. [Suspect]
     Active Substance: PHENOBARBITAL
     Indication: SEIZURE
     Route: 065
  8. FOSPHENYTOIN [Suspect]
     Active Substance: FOSPHENYTOIN\FOSPHENYTOIN SODIUM
     Indication: SEIZURE
     Route: 065
  9. PENTOBARBITAL [Suspect]
     Active Substance: PENTOBARBITAL
     Indication: EPILEPSY
     Dosage: 10 MG/KG
     Route: 042

REACTIONS (1)
  - Seizure [Unknown]
